FAERS Safety Report 7343376-8 (Version None)
Quarter: 2011Q1

REPORT INFORMATION
  Report Type: 
  Country: None (occurrence: None)
  Receive Date: 20110310
  Receipt Date: 20110304
  Transmission Date: 20110831
  Serious: Yes (Hospitalization)
  Sender: FDA-Public Use
  Company Number: PHHO2011DE02852

PATIENT
  Sex: Male
  Weight: 59 kg

DRUGS (5)
  1. MYFORTIC [Suspect]
     Indication: LIVER TRANSPLANT
     Dosage: UNK
     Route: 048
     Dates: start: 20100213
  2. SIMULECT [Concomitant]
     Indication: LIVER TRANSPLANT
     Dosage: 20 MG, ONCE/SINGLE
     Dates: start: 20100212, end: 20100212
  3. PREDNISOLONE [Concomitant]
     Indication: LIVER TRANSPLANT
     Dosage: UNK
     Route: 048
     Dates: start: 20100213
  4. SIMULECT [Concomitant]
     Dosage: 20 MG, ONCE/SINGLE
     Route: 048
     Dates: start: 20100216, end: 20100216
  5. EVEROLIMUS [Suspect]
     Indication: LIVER TRANSPLANT
     Dosage: 12 MG, QD
     Route: 048
     Dates: start: 20100217, end: 20110207

REACTIONS (1)
  - IMPAIRED HEALING [None]
